FAERS Safety Report 11688190 (Version 1)
Quarter: 2015Q4

REPORT INFORMATION
  Report Type: Spontaneous
  Country: US (occurrence: US)
  Receive Date: 20151030
  Receipt Date: 20151030
  Transmission Date: 20160304
  Serious: No
  Sender: FDA-Public Use
  Company Number: US-ASTRAZENECA-2015SF01531

PATIENT
  Sex: Male
  Weight: 63.5 kg

DRUGS (3)
  1. MOVANTIK [Suspect]
     Active Substance: NALOXEGOL OXALATE
     Indication: CONSTIPATION
     Route: 048
     Dates: start: 201509
  2. HYDROCODONE [Concomitant]
     Active Substance: HYDROCODONE
     Indication: GASTROINTESTINAL PAIN
     Dosage: 10/325, THREE TIMES A DAY
     Route: 048
     Dates: start: 2012
  3. HYDROCODONE [Concomitant]
     Active Substance: HYDROCODONE
     Indication: BLADDER PAIN
     Dosage: 10/325, THREE TIMES A DAY
     Route: 048
     Dates: start: 2012

REACTIONS (1)
  - Constipation [Unknown]
